FAERS Safety Report 18721673 (Version 1)
Quarter: 2021Q1

REPORT INFORMATION
  Report Type: Other
  Country: CA (occurrence: CA)
  Receive Date: 20210110
  Receipt Date: 20210110
  Transmission Date: 20210419
  Serious: Yes (Death, Other)
  Sender: FDA-Public Use
  Company Number: CA-CELLTRION INC.-2021CA000064

PATIENT

DRUGS (7)
  1. RITUXIMAB (UNKNOWN) [Suspect]
     Active Substance: RITUXIMAB
     Indication: IMMUNE THROMBOCYTOPENIA
     Route: 065
  2. LIPITOR [Concomitant]
     Active Substance: ATORVASTATIN CALCIUM
     Indication: PRODUCT USED FOR UNKNOWN INDICATION
     Route: 065
  3. NOVORAPID [Concomitant]
     Active Substance: INSULIN ASPART
     Indication: PRODUCT USED FOR UNKNOWN INDICATION
     Route: 065
  4. ELTROXIN [Concomitant]
     Active Substance: LEVOTHYROXINE
     Indication: PRODUCT USED FOR UNKNOWN INDICATION
     Route: 065
  5. REVOLADE [Suspect]
     Active Substance: ELTROMBOPAG OLAMINE
     Indication: IMMUNE THROMBOCYTOPENIA
     Dosage: 75 MG
     Route: 065
  6. REVOLADE [Suspect]
     Active Substance: ELTROMBOPAG OLAMINE
     Indication: IMMUNE THROMBOCYTOPENIA
     Dosage: 50 MG
     Route: 048
  7. DANAZOL. [Concomitant]
     Active Substance: DANAZOL
     Indication: PRODUCT USED FOR UNKNOWN INDICATION
     Route: 065

REACTIONS (28)
  - Neutrophil count increased [Fatal]
  - Chronic obstructive pulmonary disease [Fatal]
  - Diabetic nephropathy [Fatal]
  - Red cell distribution width increased [Fatal]
  - Dyspnoea [Fatal]
  - Haemoglobin decreased [Fatal]
  - Hypercholesterolaemia [Fatal]
  - Chronic kidney disease [Fatal]
  - Illness [Fatal]
  - General physical health deterioration [Fatal]
  - Mean cell haemoglobin concentration decreased [Fatal]
  - Reticulocyte count increased [Fatal]
  - Injury [Fatal]
  - Atrial fibrillation [Fatal]
  - Off label use [Unknown]
  - Gastritis [Fatal]
  - Contusion [Fatal]
  - Platelet count decreased [Fatal]
  - Gastrooesophageal reflux disease [Fatal]
  - Product use in unapproved indication [Fatal]
  - Death [Fatal]
  - Hypothyroidism [Fatal]
  - Proteinuria [Fatal]
  - Concomitant disease aggravated [Fatal]
  - Coronary artery disease [Fatal]
  - Obesity [Fatal]
  - Peripheral vascular disorder [Fatal]
  - White blood cell count increased [Fatal]
